FAERS Safety Report 11202997 (Version 2)
Quarter: 2015Q3

REPORT INFORMATION
  Report Type: Report from Study
  Country: BR (occurrence: BR)
  Receive Date: 20150619
  Receipt Date: 20150914
  Transmission Date: 20151125
  Serious: Yes (Disabling)
  Sender: FDA-Public Use
  Company Number: BR-ABBVIE-15K-020-1410339-00

PATIENT
  Sex: Female
  Weight: 80 kg

DRUGS (1)
  1. HUMIRA [Suspect]
     Active Substance: ADALIMUMAB
     Indication: PSORIATIC ARTHROPATHY
     Route: 058
     Dates: start: 20140228, end: 20150601

REACTIONS (3)
  - Deafness [Unknown]
  - Skin papilloma [Unknown]
  - Wound [Unknown]
